FAERS Safety Report 8463023-1 (Version None)
Quarter: 2012Q2

REPORT INFORMATION
  Report Type: 
  Country: None (occurrence: None)
  Receive Date: 20120625
  Receipt Date: 20100928
  Transmission Date: 20120825
  Serious: Yes (Other)
  Sender: FDA-Public Use
  Company Number: US-ROCHE-731811

PATIENT
  Sex: Female

DRUGS (3)
  1. HERCEPTIN [Suspect]
     Indication: BREAST CANCER METASTATIC
     Dosage: 2006-2009 ON AND OFF DRUG REPORTED T DM1
     Route: 065
  2. LAPATINIB [Concomitant]
  3. XELODA [Suspect]
     Indication: BREAST CANCER METASTATIC
     Dosage: TAKEN 6 MONTHS
     Route: 065

REACTIONS (1)
  - DISEASE PROGRESSION [None]
